FAERS Safety Report 7658997-2 (Version None)
Quarter: 2011Q3

REPORT INFORMATION
  Report Type: 
  Country: None (occurrence: None)
  Receive Date: 20110805
  Receipt Date: 20110725
  Transmission Date: 20111222
  Serious: Yes (Hospitalization)
  Sender: FDA-Public Use
  Company Number: US-ELI_LILLY_AND_COMPANY-US201108000571

PATIENT
  Age: 57 Year
  Sex: Female

DRUGS (7)
  1. DICYCLOMINE [Concomitant]
  2. HYZAAR [Concomitant]
  3. DIFLUNISAL [Concomitant]
  4. CYMBALTA [Suspect]
     Indication: FIBROMYALGIA
     Dosage: 60 MG, BID
     Dates: start: 20050101, end: 20110718
  5. CYMBALTA [Suspect]
     Dosage: 60 MG, QD
     Dates: start: 20110719
  6. VICODIN [Concomitant]
     Dosage: 500 MG, UNK
  7. NUVIGIL [Concomitant]

REACTIONS (3)
  - GENITAL HAEMORRHAGE [None]
  - UTERINE ENLARGEMENT [None]
  - HERPES ZOSTER [None]
